FAERS Safety Report 16330210 (Version 1)
Quarter: 2019Q2

REPORT INFORMATION
  Report Type: Spontaneous
  Country: JP (occurrence: JP)
  Receive Date: 20190520
  Receipt Date: 20190520
  Transmission Date: 20190711
  Serious: No
  Sender: FDA-Public Use
  Company Number: JP-LUPIN PHARMACEUTICALS INC.-2018-07868

PATIENT
  Age: 49 Year
  Sex: Male

DRUGS (19)
  1. ABILIFY [Suspect]
     Active Substance: ARIPIPRAZOLE
     Dosage: 400 MG, SINGLE, PROLONGED RELEASE IM INJECTION 400MG (DUAL CHAMBER SYRINGE)
     Route: 030
     Dates: start: 20160701, end: 20160701
  2. ABILIFY [Suspect]
     Active Substance: ARIPIPRAZOLE
     Dosage: 400 MG, SINGLE, PROLONGED RELEASE IM INJECTION 400MG (DUAL CHAMBER SYRINGE)
     Route: 030
     Dates: start: 20160829, end: 20160829
  3. ABILIFY [Suspect]
     Active Substance: ARIPIPRAZOLE
     Dosage: 400 MG, SINGLE, PROLONGED RELEASE IM INJECTION 400MG (DUAL CHAMBER SYRINGE)
     Route: 030
     Dates: start: 20170605
  4. PARIET [Concomitant]
     Active Substance: RABEPRAZOLE SODIUM
     Indication: PRODUCT USED FOR UNKNOWN INDICATION
     Dosage: UNK
     Route: 065
  5. QUETIAPINE FUMARATE. [Suspect]
     Active Substance: QUETIAPINE FUMARATE
     Indication: SCHIZOPHRENIA
     Dosage: 200 MG, QD
     Route: 048
  6. ABILIFY [Suspect]
     Active Substance: ARIPIPRAZOLE
     Dosage: 400 MG, SINGLE, PROLONGED RELEASE IM INJECTION 400MG (DUAL CHAMBER SYRINGE)
     Route: 030
     Dates: start: 20161121, end: 20161121
  7. ABILIFY [Suspect]
     Active Substance: ARIPIPRAZOLE
     Dosage: 400 MG, SINGLE, PROLONGED RELEASE IM INJECTION 400MG (DUAL CHAMBER SYRINGE)
     Route: 030
     Dates: start: 20160801, end: 20160801
  8. ABILIFY [Suspect]
     Active Substance: ARIPIPRAZOLE
     Dosage: 400 MG, SINGLE, PROLONGED RELEASE IM INJECTION 400MG (DUAL CHAMBER SYRINGE)
     Route: 030
     Dates: start: 20161219, end: 20161219
  9. ROHYPNOL [Concomitant]
     Active Substance: FLUNITRAZEPAM
     Indication: PRODUCT USED FOR UNKNOWN INDICATION
     Dosage: UNK
     Route: 065
  10. ABILIFY [Suspect]
     Active Substance: ARIPIPRAZOLE
     Indication: SCHIZOPHRENIA
     Dosage: 400 MG, SINGLE, PROLONGED RELEASE IM INJECTION 400MG (DUAL CHAMBER SYRINGE)
     Route: 030
  11. ABILIFY [Suspect]
     Active Substance: ARIPIPRAZOLE
     Dosage: 400 MG, SINGLE, PROLONGED RELEASE IM INJECTION 400MG (DUAL CHAMBER SYRINGE)
     Route: 030
     Dates: start: 20170313, end: 20170313
  12. ABILIFY [Suspect]
     Active Substance: ARIPIPRAZOLE
     Dosage: 400 MG, SINGLE, PROLONGED RELEASE IM INJECTION 400MG (DUAL CHAMBER SYRINGE)
     Route: 030
     Dates: start: 20170508, end: 20170508
  13. ABILIFY [Suspect]
     Active Substance: ARIPIPRAZOLE
     Dosage: 400 MG, SINGLE, PROLONGED RELEASE IM INJECTION 400MG (DUAL CHAMBER SYRINGE)
     Route: 030
     Dates: start: 20170116, end: 20170116
  14. ABILIFY [Suspect]
     Active Substance: ARIPIPRAZOLE
     Dosage: 400 MG, SINGLE, PROLONGED RELEASE IM INJECTION 400MG (DUAL CHAMBER SYRINGE)
     Route: 030
     Dates: start: 20180926, end: 20180926
  15. ABILIFY [Suspect]
     Active Substance: ARIPIPRAZOLE
     Dosage: 400 MG, SINGLE, PROLONGED RELEASE IM INJECTION 400MG (DUAL CHAMBER SYRINGE)
     Route: 030
     Dates: start: 20170213, end: 20170213
  16. ABILIFY [Suspect]
     Active Substance: ARIPIPRAZOLE
     Dosage: 400 MG, SINGLE, PROLONGED RELEASE IM INJECTION 400MG (DUAL CHAMBER SYRINGE)
     Route: 030
     Dates: start: 20161024, end: 20161024
  17. ABILIFY [Suspect]
     Active Substance: ARIPIPRAZOLE
     Dosage: 400 MG, SINGLE, PROLONGED RELEASE IM INJECTION 400MG (DUAL CHAMBER SYRINGE)
     Route: 030
     Dates: start: 20170410, end: 20170410
  18. RISPERIDONE ORAL SOLUTION [Suspect]
     Active Substance: RISPERIDONE
     Indication: SCHIZOPHRENIA
     Dosage: 12 ML, QD
     Route: 048
  19. ABILIFY [Concomitant]
     Active Substance: ARIPIPRAZOLE
     Indication: SCHIZOPHRENIA
     Dosage: UNK
     Route: 065

REACTIONS (1)
  - Psychiatric symptom [Not Recovered/Not Resolved]
